FAERS Safety Report 4339267-7 (Version None)
Quarter: 2004Q2

REPORT INFORMATION
  Report Type: 
  Country: None (occurrence: None)
  Receive Date: 20040412
  Receipt Date: 20040330
  Transmission Date: 20050107
  Serious: Yes (Hospitalization)
  Sender: FDA-Public Use
  Company Number: MK200404-0005-1

PATIENT
  Age: 56 Year
  Sex: Female

DRUGS (5)
  1. ANAFRANIL CAP [Suspect]
     Dosage: 75 MG
     Dates: start: 20031202, end: 20031223
  2. DEPAMIDE [Concomitant]
  3. RIVOTRIL [Concomitant]
  4. ZYPREXA [Concomitant]
  5. TRIMEPRAZINE TAB [Concomitant]

REACTIONS (1)
  - CYTOLYTIC HEPATITIS [None]
